FAERS Safety Report 5265648-3 (Version None)
Quarter: 2007Q1

REPORT INFORMATION
  Report Type: 
  Country: None (occurrence: None)
  Receive Date: 20061213
  Receipt Date: 20050926
  Transmission Date: 20070707
  Serious: Yes (Other)
  Sender: FDA-Public Use
  Company Number: 2005UW14399

PATIENT
  Age: 56 Year
  Sex: Female
  Weight: 69.853 kg

DRUGS (2)
  1. IRESSA [Suspect]
     Indication: LUNG NEOPLASM MALIGNANT
     Dates: start: 20041201
  2. PAIN MEDICATION [Concomitant]

REACTIONS (2)
  - ONYCHOMADESIS [None]
  - SKIN EXFOLIATION [None]
